FAERS Safety Report 17560870 (Version 4)
Quarter: 2020Q2

REPORT INFORMATION
  Report Type: Spontaneous
  Country: SK (occurrence: SK)
  Receive Date: 20200319
  Receipt Date: 20200625
  Transmission Date: 20200713
  Serious: Yes (Hospitalization, Other)
  Sender: FDA-Public Use
  Company Number: NVSC2020SK078612

PATIENT
  Age: 56 Year
  Sex: Male

DRUGS (7)
  1. ROSUVASTATIN. [Suspect]
     Active Substance: ROSUVASTATIN
     Indication: DIABETES MELLITUS
     Dosage: UNK
     Route: 065
     Dates: start: 201709
  2. METFORMIN [Suspect]
     Active Substance: METFORMIN HYDROCHLORIDE
     Indication: DIABETES MELLITUS
     Dosage: UNK
     Route: 048
     Dates: start: 2013
  3. ATORVASTATIN [Suspect]
     Active Substance: ATORVASTATIN
     Indication: DIABETES MELLITUS
     Dosage: UNK
     Route: 048
     Dates: start: 2013
  4. GLIMEPIRIDE. [Suspect]
     Active Substance: GLIMEPIRIDE
     Indication: DIABETES MELLITUS
     Dosage: UNK
     Route: 058
     Dates: start: 201709
  5. GLICLAZIDE [Suspect]
     Active Substance: GLICLAZIDE
     Indication: DIABETES MELLITUS
     Dosage: UNK
     Route: 048
     Dates: start: 2014
  6. FENOFIBRATE. [Suspect]
     Active Substance: FENOFIBRATE
     Indication: DIABETES MELLITUS
     Dosage: UNK
     Route: 048
     Dates: start: 2013
  7. INSULIN [Concomitant]
     Active Substance: INSULIN NOS
     Indication: TYPE 2 DIABETES MELLITUS
     Dosage: 15 IU, QD
     Route: 058
     Dates: start: 201709

REACTIONS (8)
  - Pancreatitis acute [Recovered/Resolved]
  - Product use in unapproved indication [Unknown]
  - Diabetic metabolic decompensation [Recovered/Resolved]
  - Diabetes mellitus [Recovered/Resolved]
  - Dyspepsia [Recovered/Resolved]
  - Abscess [Recovered/Resolved]
  - Hypertriglyceridaemia [Recovered/Resolved]
  - Pancreatitis [Recovered/Resolved]

NARRATIVE: CASE EVENT DATE: 200803
